FAERS Safety Report 18545951 (Version 1)
Quarter: 2020Q4

REPORT INFORMATION
  Report Type: Report from Study
  Country: BR (occurrence: BR)
  Receive Date: 20201125
  Receipt Date: 20201125
  Transmission Date: 20210114
  Serious: Yes (Other)
  Sender: FDA-Public Use
  Company Number: NVSC2020BR312233

PATIENT
  Sex: Female

DRUGS (3)
  1. ONBRIZE [Suspect]
     Active Substance: INDACATEROL MALEATE
     Indication: ASTHMA
     Dosage: UNK, 400 (MANY YEARS AGO)
     Route: 065
  2. MIFLONIDE [Suspect]
     Active Substance: BUDESONIDE
     Indication: ASTHMA
     Dosage: UNK, 150
     Route: 065
  3. FORASEQ [Concomitant]
     Active Substance: BUDESONIDE\FORMOTEROL FUMARATE
     Indication: ASTHMA
     Dosage: UNK (EIGHT YEARS AGO)
     Route: 065

REACTIONS (3)
  - Prescribed overdose [Unknown]
  - Myasthenia gravis [Unknown]
  - Off label use [Unknown]
